FAERS Safety Report 6779906-4 (Version None)
Quarter: 2010Q2

REPORT INFORMATION
  Report Type: 
  Country: None (occurrence: None)
  Receive Date: 20100618
  Receipt Date: 20100616
  Transmission Date: 20101027
  Serious: Yes (Disabling, Other)
  Sender: FDA-Public Use
  Company Number: US-MERCK-1006USA02771

PATIENT

DRUGS (2)
  1. FOSAMAX [Suspect]
     Route: 048
     Dates: start: 19970101, end: 20090301
  2. ALENDRONATE SODIUM [Suspect]
     Route: 048
     Dates: start: 20080501, end: 20090301

REACTIONS (4)
  - FEMUR FRACTURE [None]
  - LOW TURNOVER OSTEOPATHY [None]
  - OSTEOPOROSIS [None]
  - STRESS FRACTURE [None]
